FAERS Safety Report 6502640-2 (Version None)
Quarter: 2009Q4

REPORT INFORMATION
  Report Type: 
  Country: None (occurrence: None)
  Receive Date: 20091217
  Receipt Date: 20091207
  Transmission Date: 20100525
  Serious: Yes (Disabling)
  Sender: FDA-Public Use
  Company Number: JP-JNJFOC-20090803806

PATIENT
  Sex: Female
  Weight: 44 kg

DRUGS (7)
  1. DOXORUBICIN HCL [Suspect]
     Indication: OVARIAN CANCER RECURRENT
     Dosage: CYCLE 1
     Route: 042
  2. MAGMITT [Concomitant]
     Route: 048
  3. GOSHA-JINKI-GAN [Concomitant]
     Route: 048
  4. LAMISIL [Concomitant]
     Route: 061
  5. AZUNOL [Concomitant]
     Indication: PROPHYLAXIS
     Route: 002
  6. PASTARON [Concomitant]
     Indication: PROPHYLAXIS
     Route: 061
  7. MYSLEE [Concomitant]
     Route: 048

REACTIONS (2)
  - BONE MARROW FAILURE [None]
  - ILEUS [None]
